FAERS Safety Report 20106341 (Version 3)
Quarter: 2021Q4

REPORT INFORMATION
  Report Type: Spontaneous
  Country: US (occurrence: None)
  Receive Date: 20211124
  Receipt Date: 20211221
  Transmission Date: 20220303
  Serious: Yes (Death, Life-Threatening, Hospitalization)
  Sender: FDA-Public Use
  Company Number: US-ROCHE-2961330

PATIENT
  Age: 58 Year
  Sex: Male
  Weight: 127.2 kg

DRUGS (50)
  1. ACTEMRA [Suspect]
     Active Substance: TOCILIZUMAB
     Indication: COVID-19
     Dosage: 8 MG/KG
     Route: 042
     Dates: start: 20211111, end: 20211111
  2. ACTEMRA [Suspect]
     Active Substance: TOCILIZUMAB
     Dosage: 8MG/KG
     Route: 042
     Dates: start: 20211111, end: 20211111
  3. AMLODIPINE [Concomitant]
     Active Substance: AMLODIPINE BESYLATE
  4. ASPIRIN [Concomitant]
     Active Substance: ASPIRIN
     Dates: start: 20211111
  5. ASPIRIN [Concomitant]
     Active Substance: ASPIRIN
     Dates: start: 20211118
  6. ATORVASTATIN [Concomitant]
     Active Substance: ATORVASTATIN
     Dates: start: 20211110
  7. ATORVASTATIN [Concomitant]
     Active Substance: ATORVASTATIN
     Dates: start: 20211116
  8. CEFEPIME [Concomitant]
     Active Substance: CEFEPIME HYDROCHLORIDE
     Dates: start: 20211112
  9. CEFEPIME [Concomitant]
     Active Substance: CEFEPIME HYDROCHLORIDE
     Dates: start: 20211117
  10. CLOPIDOGREL [Concomitant]
     Active Substance: CLOPIDOGREL BISULFATE
     Dates: start: 20211111
  11. DEXAMETHASONE [Concomitant]
     Active Substance: DEXAMETHASONE
     Dates: start: 20211111
  12. DEXAMETHASONE [Concomitant]
     Active Substance: DEXAMETHASONE
     Dates: start: 20211118
  13. ETOMIDATE [Concomitant]
     Active Substance: ETOMIDATE
     Dates: start: 20211116, end: 20211116
  14. FAMOTIDINE [Concomitant]
     Active Substance: FAMOTIDINE
     Dates: start: 20211116
  15. FENTANYL [Concomitant]
     Active Substance: FENTANYL
     Dates: start: 20211116
  16. FENTANYL [Concomitant]
     Active Substance: FENTANYL
     Dates: start: 20211117
  17. FLUOXETINE [Concomitant]
     Active Substance: FLUOXETINE HYDROCHLORIDE
     Dates: start: 20211111
  18. GABAPENTIN [Concomitant]
     Active Substance: GABAPENTIN
     Dates: start: 20211111, end: 20211112
  19. HEPARIN [Concomitant]
     Active Substance: HEPARIN SODIUM
     Dates: start: 20211110
  20. HYDRALAZINE [Concomitant]
     Active Substance: HYDRALAZINE HYDROCHLORIDE
     Dates: start: 20211113, end: 20211115
  21. HYDROXYZINE [Concomitant]
     Active Substance: HYDROXYZINE HYDROCHLORIDE
     Dates: start: 20211113
  22. INSULIN ASPART [Concomitant]
     Active Substance: INSULIN ASPART
     Dates: start: 20211110
  23. INSULIN DETEMIR [Concomitant]
     Active Substance: INSULIN DETEMIR
     Dates: start: 20211110
  24. LABETALOL [Concomitant]
     Active Substance: LABETALOL\LABETALOL HYDROCHLORIDE
     Dates: start: 20211115
  25. NOREPINEPHRINE [Concomitant]
     Active Substance: NOREPINEPHRINE
     Dates: start: 20211117
  26. NOREPINEPHRINE [Concomitant]
     Active Substance: NOREPINEPHRINE
     Dates: start: 20211118
  27. VANCOMYCIN [Concomitant]
     Active Substance: VANCOMYCIN
     Dates: start: 20211112
  28. VECURONIUM [Concomitant]
     Active Substance: VECURONIUM BROMIDE
     Dates: start: 20211116
  29. ALBUTEROL\IPRATROPIUM [Concomitant]
     Active Substance: ALBUTEROL\IPRATROPIUM
     Dates: start: 20211110
  30. ALBUTEROL\IPRATROPIUM [Concomitant]
     Active Substance: ALBUTEROL\IPRATROPIUM
     Dates: start: 20211118
  31. HYDROMORPHONE [Concomitant]
     Active Substance: HYDROMORPHONE
     Dates: start: 20211118
  32. INFLUENZA VIRUS VACCINE [Concomitant]
     Active Substance: INFLUENZA VIRUS VACCINE
  33. INSULIN NOS [Concomitant]
     Active Substance: INSULIN NOS
  34. LAMOTRIGINE [Concomitant]
     Active Substance: LAMOTRIGINE
     Dates: start: 20211118
  35. LEVOTHYROXINE [Concomitant]
     Active Substance: LEVOTHYROXINE
     Dosage: 1000 UNITS
     Dates: start: 20211117
  36. LIDOCAINE [Concomitant]
     Active Substance: LIDOCAINE
  37. LISINOPRIL [Concomitant]
     Active Substance: LISINOPRIL
  38. LORAZEPAM [Concomitant]
     Active Substance: LORAZEPAM
     Dates: start: 20211118
  39. MAGNESIUM SULFATE [Concomitant]
     Active Substance: MAGNESIUM SULFATE
  40. METOCLOPRAMIDE [Concomitant]
     Active Substance: METOCLOPRAMIDE
  41. MIDAZOLAM [Concomitant]
     Active Substance: MIDAZOLAM
  42. MORPHINE [Concomitant]
     Active Substance: MORPHINE
     Dates: start: 20211118
  43. ONDANSETRON [Concomitant]
     Active Substance: ONDANSETRON
  44. PANTOPRAZOLE [Concomitant]
     Active Substance: PANTOPRAZOLE
     Dates: start: 20211118
  45. PROPOFOL [Concomitant]
     Active Substance: PROPOFOL
     Dates: start: 20211118
  46. PROPOFOL [Concomitant]
     Active Substance: PROPOFOL
     Dates: start: 20211117
  47. SODIUM BICARBONATE [Concomitant]
     Active Substance: SODIUM BICARBONATE
     Dates: start: 20211118
  48. SODIUM CHLORIDE [Concomitant]
     Active Substance: SODIUM CHLORIDE
     Dates: start: 20211118
  49. TRAZODONE [Concomitant]
     Active Substance: TRAZODONE HYDROCHLORIDE
  50. VASOPRESSIN [Concomitant]
     Active Substance: VASOPRESSIN
     Dosage: 2.4 UNITS
     Dates: start: 20211118

REACTIONS (6)
  - Tachypnoea [Unknown]
  - Dyspnoea [Unknown]
  - Acute respiratory failure [Unknown]
  - Off label use [Unknown]
  - COVID-19 [Fatal]
  - Mechanical ventilation [Fatal]

NARRATIVE: CASE EVENT DATE: 20211116
